FAERS Safety Report 21299726 (Version 1)
Quarter: 2022Q3

REPORT INFORMATION
  Report Type: Report from Study
  Country: BE (occurrence: None)
  Receive Date: 20220906
  Receipt Date: 20220906
  Transmission Date: 20221027
  Serious: Yes (Death, Life-Threatening)
  Sender: FDA-Public Use
  Company Number: BE-Eisai Medical Research-EC-2022-122823

PATIENT
  Age: 69 Year
  Sex: Female
  Weight: 95.5 kg

DRUGS (2)
  1. LENVIMA [Suspect]
     Active Substance: LENVATINIB
     Indication: Endometrial cancer
     Route: 048
     Dates: start: 20220427, end: 20220612
  2. PEMBROLIZUMAB [Concomitant]
     Active Substance: PEMBROLIZUMAB
     Indication: Endometrial cancer
     Dosage: FREQUENCY UNKNOWN
     Route: 042
     Dates: start: 20220426, end: 20220607

REACTIONS (1)
  - Oesophageal haemorrhage [Fatal]

NARRATIVE: CASE EVENT DATE: 20220611
